FAERS Safety Report 17209968 (Version 4)
Quarter: 2022Q2

REPORT INFORMATION
  Report Type: Spontaneous
  Country: US (occurrence: None)
  Receive Date: 20191227
  Receipt Date: 20220629
  Transmission Date: 20220721
  Serious: Yes (Hospitalization, Other)
  Sender: FDA-Public Use
  Company Number: 2019SF87465

PATIENT
  Age: 16784 Day
  Sex: Male

DRUGS (68)
  1. FARXIGA [Suspect]
     Active Substance: DAPAGLIFLOZIN PROPANEDIOL
     Indication: Type 2 diabetes mellitus
     Route: 048
  2. FARXIGA [Suspect]
     Active Substance: DAPAGLIFLOZIN PROPANEDIOL
     Indication: Blood pressure decreased
     Route: 048
  3. XIGDUO XR [Suspect]
     Active Substance: DAPAGLIFLOZIN PROPANEDIOL\METFORMIN HYDROCHLORIDE
     Indication: Type 2 diabetes mellitus
     Route: 048
     Dates: start: 20170103
  4. XIGDUO XR [Suspect]
     Active Substance: DAPAGLIFLOZIN PROPANEDIOL\METFORMIN HYDROCHLORIDE
     Indication: Weight decreased
     Route: 048
     Dates: start: 20170103
  5. XIGDUO XR [Suspect]
     Active Substance: DAPAGLIFLOZIN PROPANEDIOL\METFORMIN HYDROCHLORIDE
     Indication: Blood pressure decreased
     Route: 048
     Dates: start: 20170103
  6. XIGDUO XR [Suspect]
     Active Substance: DAPAGLIFLOZIN PROPANEDIOL\METFORMIN HYDROCHLORIDE
     Indication: Type 2 diabetes mellitus
     Route: 048
     Dates: start: 20170202, end: 20180813
  7. XIGDUO XR [Suspect]
     Active Substance: DAPAGLIFLOZIN PROPANEDIOL\METFORMIN HYDROCHLORIDE
     Indication: Weight decreased
     Route: 048
     Dates: start: 20170202, end: 20180813
  8. XIGDUO XR [Suspect]
     Active Substance: DAPAGLIFLOZIN PROPANEDIOL\METFORMIN HYDROCHLORIDE
     Indication: Blood pressure decreased
     Route: 048
     Dates: start: 20170202, end: 20180813
  9. XIGDUO XR [Suspect]
     Active Substance: DAPAGLIFLOZIN PROPANEDIOL\METFORMIN HYDROCHLORIDE
     Indication: Type 2 diabetes mellitus
     Dosage: 5-100 MG EVERY MORNIG, GENERIC
     Route: 048
     Dates: start: 20180109
  10. XIGDUO XR [Suspect]
     Active Substance: DAPAGLIFLOZIN PROPANEDIOL\METFORMIN HYDROCHLORIDE
     Indication: Weight decreased
     Dosage: 5-100 MG EVERY MORNIG, GENERIC
     Route: 048
     Dates: start: 20180109
  11. XIGDUO XR [Suspect]
     Active Substance: DAPAGLIFLOZIN PROPANEDIOL\METFORMIN HYDROCHLORIDE
     Indication: Blood pressure decreased
     Dosage: 5-100 MG EVERY MORNIG, GENERIC
     Route: 048
     Dates: start: 20180109
  12. XIGDUO XR [Suspect]
     Active Substance: DAPAGLIFLOZIN PROPANEDIOL\METFORMIN HYDROCHLORIDE
     Indication: Type 2 diabetes mellitus
     Route: 048
     Dates: start: 20180215
  13. XIGDUO XR [Suspect]
     Active Substance: DAPAGLIFLOZIN PROPANEDIOL\METFORMIN HYDROCHLORIDE
     Indication: Weight decreased
     Route: 048
     Dates: start: 20180215
  14. XIGDUO XR [Suspect]
     Active Substance: DAPAGLIFLOZIN PROPANEDIOL\METFORMIN HYDROCHLORIDE
     Indication: Blood pressure decreased
     Route: 048
     Dates: start: 20180215
  15. XIGDUO XR [Suspect]
     Active Substance: DAPAGLIFLOZIN PROPANEDIOL\METFORMIN HYDROCHLORIDE
     Indication: Type 2 diabetes mellitus
     Dosage: 5-100O MG
     Route: 048
     Dates: start: 20180109
  16. XIGDUO XR [Suspect]
     Active Substance: DAPAGLIFLOZIN PROPANEDIOL\METFORMIN HYDROCHLORIDE
     Indication: Weight decreased
     Dosage: 5-100O MG
     Route: 048
     Dates: start: 20180109
  17. XIGDUO XR [Suspect]
     Active Substance: DAPAGLIFLOZIN PROPANEDIOL\METFORMIN HYDROCHLORIDE
     Indication: Blood pressure decreased
     Dosage: 5-100O MG
     Route: 048
     Dates: start: 20180109
  18. XIGDUO XR [Suspect]
     Active Substance: DAPAGLIFLOZIN PROPANEDIOL\METFORMIN HYDROCHLORIDE
     Indication: Type 2 diabetes mellitus
     Dosage: 5-100O MG
     Route: 048
     Dates: start: 20180205
  19. XIGDUO XR [Suspect]
     Active Substance: DAPAGLIFLOZIN PROPANEDIOL\METFORMIN HYDROCHLORIDE
     Indication: Weight decreased
     Dosage: 5-100O MG
     Route: 048
     Dates: start: 20180205
  20. XIGDUO XR [Suspect]
     Active Substance: DAPAGLIFLOZIN PROPANEDIOL\METFORMIN HYDROCHLORIDE
     Indication: Blood pressure decreased
     Dosage: 5-100O MG
     Route: 048
     Dates: start: 20180205
  21. XIGDUO XR [Suspect]
     Active Substance: DAPAGLIFLOZIN PROPANEDIOL\METFORMIN HYDROCHLORIDE
     Indication: Type 2 diabetes mellitus
     Dosage: 5-100O MG
     Route: 048
     Dates: start: 20180813
  22. XIGDUO XR [Suspect]
     Active Substance: DAPAGLIFLOZIN PROPANEDIOL\METFORMIN HYDROCHLORIDE
     Indication: Weight decreased
     Dosage: 5-100O MG
     Route: 048
     Dates: start: 20180813
  23. XIGDUO XR [Suspect]
     Active Substance: DAPAGLIFLOZIN PROPANEDIOL\METFORMIN HYDROCHLORIDE
     Indication: Blood pressure decreased
     Dosage: 5-100O MG
     Route: 048
     Dates: start: 20180813
  24. MELOXICAM [Concomitant]
     Active Substance: MELOXICAM
     Dates: start: 20180109
  25. NOVOLOG [Concomitant]
     Active Substance: INSULIN ASPART
     Dates: start: 20180109
  26. NOVOLOG [Concomitant]
     Active Substance: INSULIN ASPART
     Dates: start: 2015, end: 2018
  27. TRESIBA [Concomitant]
     Active Substance: INSULIN DEGLUDEC
     Dates: start: 20180109
  28. ATORVASTATIN [Concomitant]
     Active Substance: ATORVASTATIN
  29. HYDROCODONE [Concomitant]
     Active Substance: HYDROCODONE
  30. SILDENAFIL [Concomitant]
     Active Substance: SILDENAFIL
  31. DOXEPIN [Concomitant]
     Active Substance: DOXEPIN
     Dates: start: 20170818
  32. DICLOFENAC [Concomitant]
     Active Substance: DICLOFENAC
     Dates: start: 20180109
  33. INVOKANA [Concomitant]
     Active Substance: CANAGLIFLOZIN
     Dosage: 300.0MG UNKNOWN
     Dates: start: 2015, end: 2016
  34. INVOKANA [Concomitant]
     Active Substance: CANAGLIFLOZIN
     Dosage: 1000.0MG UNKNOWN
     Dates: start: 2017, end: 2018
  35. CHLORHEXIDINE [Concomitant]
     Active Substance: CHLORHEXIDINE
  36. AMOXICILLIN [Concomitant]
     Active Substance: AMOXICILLIN
  37. OXYCODONE [Concomitant]
     Active Substance: OXYCODONE
     Dates: start: 20180215
  38. LEVEMIR [Concomitant]
     Active Substance: INSULIN DETEMIR
     Dates: start: 20161020
  39. ALPRAZOLAM [Concomitant]
     Active Substance: ALPRAZOLAM
     Dates: start: 20150515
  40. METFORMIN [Concomitant]
     Active Substance: METFORMIN HYDROCHLORIDE
     Dates: start: 20160311
  41. METFORMIN [Concomitant]
     Active Substance: METFORMIN HYDROCHLORIDE
     Dosage: 5-1000MG
     Dates: start: 20160311, end: 20161020
  42. LYRICA [Concomitant]
     Active Substance: PREGABALIN
     Dates: start: 20150128
  43. DOCUSATE [Concomitant]
     Active Substance: DOCUSATE
  44. LISINOPRIL [Concomitant]
     Active Substance: LISINOPRIL
  45. IBUPROFEN [Concomitant]
     Active Substance: IBUPROFEN
  46. PROVIGIL [Concomitant]
     Active Substance: MODAFINIL
  47. ACETAMINOPHEN\HYDROCODONE BITARTRATE [Concomitant]
     Active Substance: ACETAMINOPHEN\HYDROCODONE BITARTRATE
  48. FLEXERIL [Concomitant]
     Active Substance: CYCLOBENZAPRINE HYDROCHLORIDE
  49. ONDANSETRON [Concomitant]
     Active Substance: ONDANSETRON
     Route: 065
     Dates: start: 20180125
  50. TIZANIDINE [Concomitant]
     Active Substance: TIZANIDINE
     Route: 065
     Dates: start: 20180125
  51. GABAPENTIN [Concomitant]
     Active Substance: GABAPENTIN
     Route: 065
     Dates: start: 20180125
  52. CEFTRIAXONE [Concomitant]
     Active Substance: CEFTRIAXONE
     Route: 065
     Dates: start: 20180125
  53. IOPAMIDOL [Concomitant]
     Active Substance: IOPAMIDOL
     Route: 065
     Dates: start: 20180125
  54. DOXYCYCLINE HYCLATE [Concomitant]
     Active Substance: DOXYCYCLINE HYCLATE
     Route: 065
     Dates: start: 20180125
  55. CODEINE PHOSPHATE/BUTALBITAL/PARACETAMOL/CAFFEINE [Concomitant]
     Route: 065
     Dates: start: 20180125
  56. CLINDAMYCIN HYDROCHLORIDE [Concomitant]
     Active Substance: CLINDAMYCIN HYDROCHLORIDE
     Route: 065
     Dates: start: 20180125
  57. AMOXICILLIN\CLAVULANATE POTASSIUM [Concomitant]
     Active Substance: AMOXICILLIN\CLAVULANATE POTASSIUM
     Route: 065
     Dates: start: 20180125
  58. LEVOCETIRIZINE [Concomitant]
     Active Substance: LEVOCETIRIZINE
     Route: 065
     Dates: start: 20180125
  59. VENTOLIN HFA [Concomitant]
     Active Substance: ALBUTEROL SULFATE
     Route: 065
     Dates: start: 20180125
  60. AMBROXOL/SULFAMETHOXAZOLE/TRIMETHOPRIM [Concomitant]
     Route: 065
     Dates: start: 20180125
  61. BYDUREON [Concomitant]
     Active Substance: EXENATIDE
     Route: 065
     Dates: start: 20180125
  62. PREDNISONE [Concomitant]
     Active Substance: PREDNISONE
     Route: 065
     Dates: start: 20180125
  63. LANTUS SOLOSTAR [Concomitant]
     Active Substance: INSULIN GLARGINE
     Route: 065
     Dates: start: 20180125
  64. HUMALOG [Concomitant]
     Active Substance: INSULIN LISPRO
     Route: 065
     Dates: start: 20180125
  65. HYDROCHLOROTHIAZIDE\LISINOPRIL [Concomitant]
     Active Substance: HYDROCHLOROTHIAZIDE\LISINOPRIL
     Route: 065
     Dates: start: 20180125
  66. SENNA [Concomitant]
     Active Substance: SENNA LEAF\SENNOSIDES\SENNOSIDES A AND B
  67. LITHIUM CARBONATE [Concomitant]
     Active Substance: LITHIUM CARBONATE
  68. PENICILLIN [Concomitant]
     Active Substance: PENICILLIN

REACTIONS (5)
  - Fournier^s gangrene [Unknown]
  - Scrotal abscess [Unknown]
  - Inguinal hernia gangrenous [Unknown]
  - Sepsis [Unknown]
  - Soft tissue necrosis [Unknown]

NARRATIVE: CASE EVENT DATE: 20180125
